FAERS Safety Report 12746111 (Version 1)
Quarter: 2016Q3

REPORT INFORMATION
  Report Type: Spontaneous
  Country: CN (occurrence: CN)
  Receive Date: 20160915
  Receipt Date: 20160915
  Transmission Date: 20161109
  Serious: Yes (Death)
  Sender: FDA-Public Use
  Company Number: CN-OTSUKA-02100-JPN-06-0014

PATIENT
  Age: 68 Year
  Sex: Male

DRUGS (3)
  1. PLETAAL [Suspect]
     Active Substance: CILOSTAZOL
     Indication: PRODUCT USED FOR UNKNOWN INDICATION
     Dosage: 50 MG, BID
     Route: 048
     Dates: start: 20050616, end: 20051206
  2. PLETAAL [Suspect]
     Active Substance: CILOSTAZOL
     Dosage: 100 MG, BID
     Route: 048
     Dates: start: 20051207, end: 20051216
  3. BAYASPIRIN [Concomitant]
     Active Substance: ASPIRIN
     Indication: PRODUCT USED FOR UNKNOWN INDICATION
     Dosage: 100 MG, QD
     Route: 048

REACTIONS (3)
  - Death [Fatal]
  - Chest pain [Fatal]
  - Hypotension [Fatal]

NARRATIVE: CASE EVENT DATE: 20051216
